FAERS Safety Report 7121574-6 (Version None)
Quarter: 2010Q4

REPORT INFORMATION
  Report Type: 
  Country: None (occurrence: None)
  Receive Date: 20101124
  Receipt Date: 20101111
  Transmission Date: 20110411
  Serious: Yes (Hospitalization, Disabling, Other)
  Sender: FDA-Public Use
  Company Number: US-ELI_LILLY_AND_COMPANY-US201003007176

PATIENT
  Sex: Female

DRUGS (3)
  1. FORTEO [Suspect]
     Indication: OSTEOPOROSIS
     Dosage: 20 UG, DAILY (1/D)
     Route: 065
     Dates: start: 20100601
  2. SYNTHROID [Concomitant]
  3. VITAMINS [Concomitant]

REACTIONS (11)
  - APHASIA [None]
  - BALANCE DISORDER [None]
  - CEREBROVASCULAR ACCIDENT [None]
  - DISABILITY [None]
  - DIZZINESS [None]
  - ERUCTATION [None]
  - FALL [None]
  - MUSCLE STRAIN [None]
  - MYALGIA [None]
  - RETCHING [None]
  - TONGUE DISORDER [None]
